FAERS Safety Report 11820676 (Version 1)
Quarter: 2015Q4

REPORT INFORMATION
  Report Type: Spontaneous
  Country: US (occurrence: US)
  Receive Date: 20151210
  Receipt Date: 20151210
  Transmission Date: 20160305
  Serious: No
  Sender: FDA-Public Use
  Company Number: US-JNJFOC-20150103262

PATIENT
  Age: 68 Year
  Sex: Female

DRUGS (13)
  1. AMLODIPINE [Concomitant]
     Active Substance: AMLODIPINE BESYLATE
  2. PRILOSEC [Concomitant]
     Active Substance: OMEPRAZOLE MAGNESIUM
  3. FISH OIL [Concomitant]
     Active Substance: FISH OIL
  4. IMBRUVICA [Suspect]
     Active Substance: IBRUTINIB
     Indication: CHRONIC LYMPHOCYTIC LEUKAEMIA
     Route: 048
     Dates: start: 20140609
  5. MECLIZINE [Concomitant]
     Active Substance: MECLIZINE\MECLIZINE HYDROCHLORIDE
  6. PRAVACHOL [Concomitant]
     Active Substance: PRAVASTATIN SODIUM
  7. CENTRUM NOS [Concomitant]
  8. BIOTIN [Concomitant]
     Active Substance: BIOTIN
  9. IMBRUVICA [Suspect]
     Active Substance: IBRUTINIB
     Indication: CHRONIC LYMPHOCYTIC LEUKAEMIA
     Route: 048
     Dates: start: 20150125
  10. METOPROLOL [Concomitant]
     Active Substance: METOPROLOL
  11. ASPIRIN. [Concomitant]
     Active Substance: ASPIRIN
  12. FENOFIBRATE. [Concomitant]
     Active Substance: FENOFIBRATE
  13. CALCIUM [Concomitant]
     Active Substance: CALCIUM

REACTIONS (5)
  - Arthralgia [Unknown]
  - Muscle spasms [Unknown]
  - Myalgia [Recovered/Resolved]
  - Leukocytosis [Unknown]
  - Bone pain [Recovered/Resolved]

NARRATIVE: CASE EVENT DATE: 201408
